FAERS Safety Report 7980287-9 (Version None)
Quarter: 2011Q4

REPORT INFORMATION
  Report Type: 
  Country: None (occurrence: None)
  Receive Date: 20111214
  Receipt Date: 20111205
  Transmission Date: 20120403
  Serious: Yes (Other)
  Sender: FDA-Public Use
  Company Number: US-ASTRAZENECA-2010SE48461

PATIENT
  Age: 64 Year
  Sex: Female

DRUGS (2)
  1. SYMBICORT [Suspect]
     Indication: CHRONIC OBSTRUCTIVE PULMONARY DISEASE
     Dosage: 160/4.5 MCG 2 PUFFS BID
     Route: 055
     Dates: end: 20100901
  2. NEXIUM [Suspect]
     Route: 048

REACTIONS (4)
  - EYE SWELLING [None]
  - THROAT IRRITATION [None]
  - CATARACT [None]
  - POSTERIOR CAPSULE OPACIFICATION [None]
